FAERS Safety Report 6234494-6 (Version None)
Quarter: 2009Q2

REPORT INFORMATION
  Report Type: 
  Country: None (occurrence: None)
  Receive Date: 20090618
  Receipt Date: 20080905
  Transmission Date: 20091009
  Serious: No
  Sender: FDA-Public Use
  Company Number: US-BRISTOL-MYERS SQUIBB COMPANY-14325732

PATIENT
  Sex: Male

DRUGS (1)
  1. SINEMET [Suspect]

REACTIONS (1)
  - GALACTORRHOEA [None]
